FAERS Safety Report 7501124-2 (Version None)
Quarter: 2011Q2

REPORT INFORMATION
  Report Type: 
  Country: None (occurrence: None)
  Receive Date: 20110524
  Receipt Date: 20100721
  Transmission Date: 20111010
  Serious: No
  Sender: FDA-Public Use
  Company Number: US-NOVEN-ALL1-2010-03952

PATIENT

DRUGS (3)
  1. DALLERGY [Concomitant]
     Dosage: UNK, OTHER (THREE FOURTHS TEASPOONFULL SEASONALLY)
     Route: 048
  2. METHYLIN [Concomitant]
     Dosage: 10 MG, 1X/DAY:QD
     Route: 048
     Dates: start: 20090101
  3. DAYTRANA [Suspect]
     Dosage: 15 MG, 1X/DAY:QD
     Route: 062
     Dates: start: 20100301

REACTIONS (3)
  - WRONG TECHNIQUE IN DRUG USAGE PROCESS [None]
  - NO ADVERSE EVENT [None]
  - PRODUCT QUALITY ISSUE [None]
